FAERS Safety Report 19880359 (Version 1)
Quarter: 2021Q3

REPORT INFORMATION
  Report Type: Report from Study
  Country: US (occurrence: US)
  Receive Date: 20210924
  Receipt Date: 20210924
  Transmission Date: 20211014
  Serious: Yes (Hospitalization)
  Sender: FDA-Public Use
  Company Number: US-EISAI MEDICAL RESEARCH-EC-2021-098480

PATIENT
  Age: 63 Year
  Sex: Female

DRUGS (14)
  1. LENVIMA [Suspect]
     Active Substance: LENVATINIB
     Route: 048
     Dates: start: 2021
  2. LENVIMA [Suspect]
     Active Substance: LENVATINIB
     Indication: SALIVARY GLAND CANCER
     Route: 048
     Dates: start: 20210818, end: 2021
  3. SYNTHROID [Concomitant]
     Active Substance: LEVOTHYROXINE SODIUM
  4. ATORVASTATIN [Concomitant]
     Active Substance: ATORVASTATIN
  5. METFORMIN [Concomitant]
     Active Substance: METFORMIN HYDROCHLORIDE
  6. ALLOPURINOL. [Concomitant]
     Active Substance: ALLOPURINOL
  7. AMLODIPINE [Concomitant]
     Active Substance: AMLODIPINE BESYLATE
  8. VITAMIN B12 [Concomitant]
     Active Substance: CYANOCOBALAMIN
  9. VITAMIN D3 [Concomitant]
     Active Substance: CHOLECALCIFEROL
  10. SIMVASTATIN. [Concomitant]
     Active Substance: SIMVASTATIN
  11. ONDANSETRON [Concomitant]
     Active Substance: ONDANSETRON
  12. MULTIVITAMIN [Concomitant]
     Active Substance: VITAMINS
  13. LISINOPRIL. [Concomitant]
     Active Substance: LISINOPRIL
  14. GABAPENTIN. [Concomitant]
     Active Substance: GABAPENTIN

REACTIONS (8)
  - Neuralgia [Recovered/Resolved]
  - Blood pressure increased [Recovered/Resolved]
  - Migraine [Not Recovered/Not Resolved]
  - Dysphonia [Recovered/Resolved]
  - Oropharyngeal pain [Not Recovered/Not Resolved]
  - Fatigue [Recovered/Resolved]
  - Arthralgia [Not Recovered/Not Resolved]
  - Cough [Not Recovered/Not Resolved]

NARRATIVE: CASE EVENT DATE: 2021
